FAERS Safety Report 19808367 (Version 2)
Quarter: 2021Q4

REPORT INFORMATION
  Report Type: Spontaneous
  Country: US (occurrence: US)
  Receive Date: 20210909
  Receipt Date: 20211023
  Transmission Date: 20220303
  Serious: Yes (Other)
  Sender: FDA-Public Use
  Company Number: US-UNITED THERAPEUTICS-UNT-2021-014487

PATIENT
  Sex: Female
  Weight: 99.77 kg

DRUGS (15)
  1. TYVASO [Suspect]
     Active Substance: TREPROSTINIL
     Indication: Pulmonary arterial hypertension
     Dosage: UNK
     Dates: start: 20201201
  2. TYVASO [Suspect]
     Active Substance: TREPROSTINIL
     Dosage: 18-54 ?G, QID
  3. TYVASO [Suspect]
     Active Substance: TREPROSTINIL
     Dosage: 18 ?G, QID
  4. UPTRAVI [Suspect]
     Active Substance: SELEXIPAG
     Indication: Pulmonary arterial hypertension
     Dosage: UNK
     Route: 048
  5. UPTRAVI [Suspect]
     Active Substance: SELEXIPAG
     Dosage: 600 ?G (IN MORNING) AND 800 ?G (IN EVENING)
     Route: 048
  6. UPTRAVI [Suspect]
     Active Substance: SELEXIPAG
     Dosage: 600 ?G, BID
     Route: 048
     Dates: end: 202109
  7. UPTRAVI [Suspect]
     Active Substance: SELEXIPAG
     Dosage: UNK
     Route: 048
  8. UPTRAVI [Suspect]
     Active Substance: SELEXIPAG
     Dosage: UNK
     Route: 048
  9. UPTRAVI [Suspect]
     Active Substance: SELEXIPAG
     Dosage: 800 ?G, BID
     Route: 048
     Dates: start: 202109, end: 202109
  10. UPTRAVI [Suspect]
     Active Substance: SELEXIPAG
     Dosage: 600 ?G, BID
     Route: 048
     Dates: start: 202109
  11. OPSUMIT [Suspect]
     Active Substance: MACITENTAN
     Indication: Pulmonary arterial hypertension
     Dosage: 10 MG, QD
     Route: 048
  12. OPSUMIT [Suspect]
     Active Substance: MACITENTAN
     Dosage: UNK
     Route: 048
  13. AMBRISENTAN [Concomitant]
     Active Substance: AMBRISENTAN
     Indication: Product used for unknown indication
     Dosage: UNK
     Route: 065
  14. TADALAFIL [Concomitant]
     Active Substance: TADALAFIL
     Indication: Product used for unknown indication
     Dosage: UNK
     Route: 065
  15. NIFEDIPINE [Concomitant]
     Active Substance: NIFEDIPINE
     Indication: Product used for unknown indication
     Dosage: UNK
     Route: 065

REACTIONS (22)
  - Clostridium difficile infection [Unknown]
  - Diarrhoea [Not Recovered/Not Resolved]
  - Myalgia [Unknown]
  - Illness [Unknown]
  - Malaise [Unknown]
  - Fatigue [Unknown]
  - Abdominal discomfort [Unknown]
  - Temporomandibular joint syndrome [Unknown]
  - Arthralgia [Unknown]
  - Vomiting [Not Recovered/Not Resolved]
  - Retching [Unknown]
  - Feeling abnormal [Not Recovered/Not Resolved]
  - Sinusitis [Unknown]
  - Thinking abnormal [Unknown]
  - Nasal mucosal ulcer [Unknown]
  - Dyspnoea [Unknown]
  - Decreased appetite [Not Recovered/Not Resolved]
  - Weight decreased [Unknown]
  - Nausea [Not Recovered/Not Resolved]
  - Headache [Unknown]
  - Mucosal inflammation [Unknown]
  - Faeces discoloured [Not Recovered/Not Resolved]

NARRATIVE: CASE EVENT DATE: 20210101
